FAERS Safety Report 6734790-X (Version None)
Quarter: 2010Q2

REPORT INFORMATION
  Report Type: 
  Country: None (occurrence: None)
  Receive Date: 20100521
  Receipt Date: 20100517
  Transmission Date: 20101027
  Serious: Yes (Death, Hospitalization)
  Sender: FDA-Public Use
  Company Number: FR-BIOGENIDEC-2010BI016091

PATIENT
  Age: 38 Year
  Sex: Male

DRUGS (6)
  1. TYSABRI [Suspect]
     Indication: RELAPSING-REMITTING MULTIPLE SCLEROSIS
     Route: 042
     Dates: start: 20070531, end: 20100402
  2. LYRICA [Concomitant]
     Indication: PAIN IN EXTREMITY
     Route: 048
     Dates: start: 20090301, end: 20100419
  3. RIVOTRIL [Concomitant]
     Route: 048
     Dates: end: 20100419
  4. ZALDIAR [Concomitant]
     Indication: PAIN
     Route: 048
     Dates: end: 20100419
  5. DITROPAN [Concomitant]
     Indication: MICTURITION DISORDER
     Route: 048
     Dates: end: 20100419
  6. JOSIR LP [Concomitant]
     Indication: MICTURITION DISORDER
     Route: 048
     Dates: end: 20100419

REACTIONS (5)
  - ACCIDENTAL DEATH [None]
  - AMNESIA [None]
  - ANXIETY [None]
  - CONFUSIONAL STATE [None]
  - INSOMNIA [None]
